FAERS Safety Report 5042838-6 (Version None)
Quarter: 2006Q3

REPORT INFORMATION
  Report Type: 
  Country: None (occurrence: None)
  Receive Date: 20060705
  Receipt Date: 20060630
  Transmission Date: 20061208
  Serious: Yes (Hospitalization)
  Sender: FDA-Public Use
  Company Number: CA-GLAXOSMITHKLINE-A0610944A

PATIENT
  Sex: Female

DRUGS (2)
  1. LAMOTRIGINE [Suspect]
     Route: 048
  2. VALPROIC ACID [Suspect]

REACTIONS (3)
  - HYPOTHERMIA [None]
  - PERICARDIAL EFFUSION [None]
  - PLEURAL EFFUSION [None]
